FAERS Safety Report 8494774-0 (Version None)
Quarter: 2012Q2

REPORT INFORMATION
  Report Type: 
  Country: None (occurrence: None)
  Receive Date: 20120628
  Receipt Date: 20120620
  Transmission Date: 20120825
  Serious: Yes (Other)
  Sender: FDA-Public Use
  Company Number: AUR-APL-2012-02591

PATIENT
  Sex: Male

DRUGS (3)
  1. XARELTO [Suspect]
     Indication: ATRIAL FIBRILLATION
     Dosage: 20 MG (20 MG,1 IN 1 D),ORAL
     Route: 048
     Dates: start: 20120323, end: 20120511
  2. METOPROLOL TARTRATE [Suspect]
     Indication: PRODUCT USED FOR UNKNOWN INDICATION
     Dosage: (3 DOSAGE FORMS,1 D)
  3. LIPITOR [Suspect]
     Indication: BLOOD CHOLESTEROL
     Dates: start: 20120326

REACTIONS (12)
  - RASH PUSTULAR [None]
  - OEDEMA PERIPHERAL [None]
  - MOBILITY DECREASED [None]
  - BURNING SENSATION [None]
  - FRUSTRATION [None]
  - HEART RATE DECREASED [None]
  - DYSPNOEA [None]
  - DRUG INEFFECTIVE [None]
  - HAEMORRHAGE [None]
  - VISUAL IMPAIRMENT [None]
  - ERYTHEMA [None]
  - DRY MOUTH [None]
